FAERS Safety Report 7264643-2 (Version None)
Quarter: 2011Q1

REPORT INFORMATION
  Report Type: 
  Country: None (occurrence: None)
  Receive Date: 20110119
  Receipt Date: 20110106
  Transmission Date: 20110831
  Serious: Yes (Other)
  Sender: FDA-Public Use
  Company Number: 025027

PATIENT
  Weight: 99.7913 kg

DRUGS (6)
  1. DYAZIDE [Concomitant]
  2. IMMUNOSUPPRESSIVE AGENTS [Concomitant]
  3. CORTICOSTEROIDS [Concomitant]
  4. OMEPRAZOLE [Concomitant]
  5. SYNTHROID [Concomitant]
  6. CIMZIA [Suspect]
     Indication: CROHN'S DISEASE
     Dosage: (400 MG 1X/2 WEEKS SUBCUTANEOUS)
     Route: 058
     Dates: start: 20101006

REACTIONS (3)
  - MYALGIA [None]
  - SWELLING FACE [None]
  - RASH MACULAR [None]
